FAERS Safety Report 5972411-4 (Version None)
Quarter: 2008Q4

REPORT INFORMATION
  Report Type: 
  Country: None (occurrence: None)
  Receive Date: 20081201
  Receipt Date: 20081027
  Transmission Date: 20090506
  Serious: No
  Sender: FDA-Public Use
  Company Number: US-BAYER-200836844NA

PATIENT
  Sex: Female

DRUGS (3)
  1. AVELOX [Suspect]
     Indication: DRUG USE FOR UNKNOWN INDICATION
     Dates: start: 20080101
  2. AVELOX [Suspect]
  3. AVELOX [Suspect]

REACTIONS (6)
  - BURNING SENSATION [None]
  - EAR DISCOMFORT [None]
  - FEELING HOT [None]
  - HYPERSENSITIVITY [None]
  - NERVOUSNESS [None]
  - PRURITUS [None]
